FAERS Safety Report 6005061-4 (Version None)
Quarter: 2008Q4

REPORT INFORMATION
  Report Type: 
  Country: None (occurrence: None)
  Receive Date: 20081215
  Receipt Date: 20081208
  Transmission Date: 20090506
  Serious: Yes (Hospitalization)
  Sender: FDA-Public Use
  Company Number: US025144

PATIENT
  Age: 63 Year
  Sex: Male

DRUGS (2)
  1. BENDAMUSTINE [Suspect]
     Indication: CHRONIC LYMPHOCYTIC LEUKAEMIA
     Dosage: 1ST CYCLE INTRAVENOUS
     Route: 042
  2. BENDAMUSTINE [Suspect]
     Indication: CHRONIC LYMPHOCYTIC LEUKAEMIA
     Dosage: 100 MG/KG 2ND CYCLE QD INTRAVENOUS
     Route: 042
     Dates: start: 20081203, end: 20081204

REACTIONS (2)
  - HAEMOLYTIC ANAEMIA [None]
  - RHEUMATOID ARTHRITIS [None]
